FAERS Safety Report 8077055-9 (Version None)
Quarter: 2012Q1

REPORT INFORMATION
  Report Type: 
  Country: None (occurrence: None)
  Receive Date: 20120127
  Receipt Date: 20120119
  Transmission Date: 20120608
  Serious: Yes (Other)
  Sender: FDA-Public Use
  Company Number: PHHY2011CA78116

PATIENT
  Sex: Female

DRUGS (2)
  1. SANDOSTATIN LAR [Suspect]
     Indication: NEUROENDOCRINE CARCINOMA
     Dosage: 20 MG, ONCE A MONTH
     Route: 030
     Dates: start: 20110901
  2. SANDOSTATIN LAR [Suspect]
     Dosage: 50 MG, QMO
     Route: 030

REACTIONS (2)
  - SPEECH DISORDER [None]
  - UNRESPONSIVE TO STIMULI [None]
